FAERS Safety Report 5383364-4 (Version None)
Quarter: 2007Q3

REPORT INFORMATION
  Report Type: 
  Country: None (occurrence: None)
  Receive Date: 20070710
  Receipt Date: 20070628
  Transmission Date: 20080115
  Serious: Yes (Other)
  Sender: FDA-Public Use
  Company Number: GB-PFIZER INC-2007054306

PATIENT
  Sex: Male

DRUGS (2)
  1. LYRICA [Suspect]
     Indication: NEURALGIA
     Route: 048
  2. DRUG, UNSPECIFIED [Concomitant]

REACTIONS (4)
  - BLEPHAROSPASM [None]
  - FEELING DRUNK [None]
  - MUSCLE TWITCHING [None]
  - VISION BLURRED [None]
